FAERS Safety Report 9261433 (Version 1)
Quarter: 2013Q2

REPORT INFORMATION
  Report Type: Spontaneous
  Country: US (occurrence: US)
  Receive Date: 20130429
  Receipt Date: 20130429
  Transmission Date: 20140414
  Serious: Yes (Other)
  Sender: FDA-Public Use
  Company Number: US-UPSHER-SMITH LABORATORIES, INC.-13001431

PATIENT
  Sex: Female

DRUGS (1)
  1. FORTICAL [Suspect]
     Indication: OSTEOPENIA
     Dosage: 200 IU, QD
     Route: 045
     Dates: start: 2005, end: 201304

REACTIONS (3)
  - Breast cancer [Recovered/Resolved]
  - Breast cancer recurrent [Recovered/Resolved]
  - Breast cancer female [None]
